FAERS Safety Report 6125978-X (Version None)
Quarter: 2009Q1

REPORT INFORMATION
  Report Type: 
  Country: None (occurrence: None)
  Receive Date: 20090320
  Receipt Date: 20090313
  Transmission Date: 20090719
  Serious: Yes (Death, Hospitalization, Other)
  Sender: FDA-Public Use
  Company Number: US-JNJFOC-20090304034

PATIENT
  Age: 42 Year
  Sex: Female

DRUGS (29)
  1. DARUNAVIR [Suspect]
     Route: 048
  2. DARUNAVIR [Suspect]
     Indication: HIV INFECTION
     Route: 048
  3. ETRAVIRINE [Suspect]
     Route: 048
  4. ETRAVIRINE [Suspect]
     Indication: HIV INFECTION
     Route: 048
  5. RALTEGRAVIR [Suspect]
     Route: 065
  6. RALTEGRAVIR [Suspect]
     Indication: HIV INFECTION
     Route: 065
  7. RITONAVIR [Suspect]
     Route: 048
  8. RITONAVIR [Suspect]
     Indication: HIV INFECTION
     Route: 048
  9. ZIDOVUDINE [Suspect]
     Route: 065
  10. ZIDOVUDINE [Suspect]
     Indication: HIV INFECTION
     Route: 065
  11. TRUVADA [Suspect]
     Route: 065
  12. TRUVADA [Suspect]
     Indication: HIV INFECTION
     Route: 065
  13. BACTRIM [Concomitant]
     Indication: PNEUMOCYSTIS JIROVECI PNEUMONIA
  14. AZITHROMYCIN [Concomitant]
  15. LOMOTIL [Concomitant]
  16. IBUPROFEN [Concomitant]
  17. PANTOPRAZOLE SODIUM [Concomitant]
     Route: 065
  18. PENTAMIDINE [Concomitant]
     Indication: PNEUMOCYSTIS JIROVECI PNEUMONIA
     Route: 055
  19. DELSYM [Concomitant]
     Indication: COUGH
     Route: 065
  20. DIFLUCAN [Concomitant]
     Indication: ORAL CANDIDIASIS
     Route: 065
  21. HYDROXYZINE [Concomitant]
  22. MARINOL [Concomitant]
  23. PEPCID [Concomitant]
  24. ZOFRAN [Concomitant]
  25. DEXAMETHASONE [Concomitant]
  26. COMPAZINE [Concomitant]
  27. POTASSIUM CHLORIDE [Concomitant]
  28. DESYREL [Concomitant]
  29. COLACE [Concomitant]

REACTIONS (16)
  - ANOREXIA [None]
  - DEHYDRATION [None]
  - DIARRHOEA [None]
  - ENCEPHALOPATHY [None]
  - GASTRIC ULCER [None]
  - GASTROINTESTINAL DISORDER [None]
  - HEPATOTOXICITY [None]
  - HYPERSENSITIVITY [None]
  - OESOPHAGEAL CANDIDIASIS [None]
  - PANCREATITIS [None]
  - PANCYTOPENIA [None]
  - PNEUMONIA [None]
  - RENAL FAILURE ACUTE [None]
  - THROMBOCYTOPENIA [None]
  - TUBULOINTERSTITIAL NEPHRITIS [None]
  - WEIGHT DECREASED [None]
